FAERS Safety Report 7237464-4 (Version None)
Quarter: 2011Q1

REPORT INFORMATION
  Report Type: 
  Country: None (occurrence: None)
  Receive Date: 20110121
  Receipt Date: 20110113
  Transmission Date: 20110831
  Serious: Yes (Hospitalization, Other)
  Sender: FDA-Public Use
  Company Number: FR-MPIJNJ-2007_03402

PATIENT

DRUGS (2)
  1. VELCADE [Suspect]
     Indication: MULTIPLE MYELOMA
     Dosage: 0.70 MG/M2, UNK
     Route: 042
     Dates: start: 20070521, end: 20070917
  2. ALKERAN [Suspect]
     Indication: MULTIPLE MYELOMA
     Dosage: 8.00 MG, UNK
     Route: 048
     Dates: start: 20070521, end: 20070913

REACTIONS (2)
  - INFECTION [None]
  - THROMBOCYTOPENIA [None]
